FAERS Safety Report 11201701 (Version 1)
Quarter: 2015Q2

REPORT INFORMATION
  Report Type: Spontaneous
  Country: FR (occurrence: FR)
  Receive Date: 20150619
  Receipt Date: 20150619
  Transmission Date: 20150821
  Serious: Yes (Other)
  Sender: FDA-Public Use
  Company Number: FR-009507513-1505FRA010067

PATIENT
  Age: 18 Year
  Sex: Female
  Weight: 61.5 kg

DRUGS (1)
  1. NEXPLANON [Suspect]
     Active Substance: ETONOGESTREL
     Indication: CONTRACEPTION
     Dosage: UNK
     Route: 058
     Dates: start: 20141117, end: 20150309

REACTIONS (5)
  - Hypotonia [Unknown]
  - Implant site pain [Recovered/Resolved]
  - Malaise [Unknown]
  - Limb discomfort [Recovered/Resolved]
  - Asthenia [Recovered/Resolved]

NARRATIVE: CASE EVENT DATE: 201412
